FAERS Safety Report 4516645-4 (Version None)
Quarter: 2004Q4

REPORT INFORMATION
  Report Type: 
  Country: None (occurrence: None)
  Receive Date: 20041202
  Receipt Date: 20041124
  Transmission Date: 20050328
  Serious: Yes (Hospitalization)
  Sender: FDA-Public Use
  Company Number: US-MERCK-0411USA03989

PATIENT
  Age: 72 Year
  Sex: Male

DRUGS (7)
  1. VIOXX [Suspect]
     Indication: ARTHRITIS
     Route: 048
     Dates: start: 20010607, end: 20040930
  2. TOPROL-XL [Concomitant]
     Route: 065
  3. VAS [Concomitant]
     Route: 065
  4. WARFARIN [Concomitant]
     Route: 065
  5. CARTIA XT [Concomitant]
     Route: 065
  6. FUROSEMIDE [Concomitant]
     Route: 065
  7. LIPITOR [Concomitant]
     Route: 065

REACTIONS (7)
  - ABDOMINAL DISTENSION [None]
  - BACK PAIN [None]
  - CARDIAC FAILURE CONGESTIVE [None]
  - JOINT SWELLING [None]
  - NECK PAIN [None]
  - PAIN [None]
  - PULMONARY CONGESTION [None]
